FAERS Safety Report 6264771-4 (Version None)
Quarter: 2009Q3

REPORT INFORMATION
  Report Type: 
  Country: None (occurrence: None)
  Receive Date: 20090710
  Receipt Date: 20090706
  Transmission Date: 20100115
  Serious: Yes (Other)
  Sender: FDA-Public Use
  Company Number: PHEH2009US07312

PATIENT

DRUGS (1)
  1. TRILEPTAL [Suspect]
     Indication: BIPOLAR DISORDER
     Dosage: UNK

REACTIONS (2)
  - CONTUSION [None]
  - PURPURA [None]
